FAERS Safety Report 10308412 (Version 2)
Quarter: 2014Q3

REPORT INFORMATION
  Report Type: Spontaneous
  Country: RU (occurrence: RU)
  Receive Date: 20140716
  Receipt Date: 20140722
  Transmission Date: 20150326
  Serious: Yes (Other)
  Sender: FDA-Public Use
  Company Number: RU-EISAI INC-E2007-01785-SPO-RU

PATIENT
  Age: 28 Year
  Sex: Male
  Weight: 65 kg

DRUGS (9)
  1. CARBAMAZEPINE. [Concomitant]
     Active Substance: CARBAMAZEPINE
     Dosage: 400 MG DAILY
     Route: 065
  2. FYCOMPA [Interacting]
     Active Substance: PERAMPANEL
     Route: 048
     Dates: start: 2014
  3. DEPAKENE [Interacting]
     Active Substance: VALPROIC ACID
     Dosage: 2000 MG DAILY
     Route: 048
     Dates: start: 20140526
  4. DEPAKENE [Interacting]
     Active Substance: VALPROIC ACID
     Dosage: 1500 MG DAILY
     Route: 048
     Dates: start: 20140520, end: 20140525
  5. DEPAKENE [Interacting]
     Active Substance: VALPROIC ACID
     Indication: EPILEPSY
     Dosage: UNKNOWN
     Route: 048
     Dates: start: 2011
  6. LAMIKTAL [Concomitant]
     Indication: PRODUCT USED FOR UNKNOWN INDICATION
     Dosage: UNKNOWN
     Route: 065
  7. CARBAMAZEPINE. [Concomitant]
     Active Substance: CARBAMAZEPINE
     Indication: PRODUCT USED FOR UNKNOWN INDICATION
     Dosage: UNKNOWN
     Route: 065
  8. DEPAKENE [Interacting]
     Active Substance: VALPROIC ACID
     Dosage: 1000 MG DAILY
     Route: 048
     Dates: end: 20140519
  9. FYCOMPA [Suspect]
     Active Substance: PERAMPANEL
     Indication: EPILEPSY
     Route: 048
     Dates: start: 20140526, end: 2014

REACTIONS (6)
  - Gait disturbance [Unknown]
  - Dysphoria [Not Recovered/Not Resolved]
  - Aggression [Not Recovered/Not Resolved]
  - Drug interaction [Not Recovered/Not Resolved]
  - Faecal incontinence [Not Recovered/Not Resolved]
  - Urinary incontinence [Not Recovered/Not Resolved]

NARRATIVE: CASE EVENT DATE: 201406
